FAERS Safety Report 4954768-6 (Version None)
Quarter: 2006Q1

REPORT INFORMATION
  Report Type: 
  Country: None (occurrence: None)
  Receive Date: 20060322
  Receipt Date: 20060302
  Transmission Date: 20060701
  Serious: No
  Sender: FDA-Public Use
  Company Number: SE200603000833

PATIENT
  Sex: Male

DRUGS (1)
  1. CIALIS [Suspect]
     Indication: ERECTILE DYSFUNCTION

REACTIONS (4)
  - HEADACHE [None]
  - INTRAOCULAR PRESSURE INCREASED [None]
  - NASAL CONGESTION [None]
  - VISION BLURRED [None]
